FAERS Safety Report 12817257 (Version 1)
Quarter: 2016Q4

REPORT INFORMATION
  Report Type: Spontaneous
  Country: US (occurrence: US)
  Receive Date: 20161006
  Receipt Date: 20161006
  Transmission Date: 20170207
  Serious: No
  Sender: FDA-Public Use
  Company Number: US-TEVA-691812ACC

PATIENT
  Age: 24 Year
  Sex: Female
  Weight: 68.1 kg

DRUGS (1)
  1. PLAN B ONE-STEP [Suspect]
     Active Substance: LEVONORGESTREL
     Indication: POST COITAL CONTRACEPTION
     Dates: start: 20160903, end: 20160903

REACTIONS (2)
  - Abdominal pain lower [Recovered/Resolved]
  - Tenderness [Recovered/Resolved]

NARRATIVE: CASE EVENT DATE: 20160903
